FAERS Safety Report 25024062 (Version 1)
Quarter: 2025Q1

REPORT INFORMATION
  Report Type: Spontaneous
  Country: US (occurrence: None)
  Receive Date: 20250228
  Receipt Date: 20250228
  Transmission Date: 20250408
  Serious: Yes (Hospitalization)
  Sender: FDA-CTU
  Company Number: None

PATIENT
  Age: 61 Year
  Sex: Male
  Weight: 91 kg

DRUGS (1)
  1. SEMAGLUTIDE [Suspect]
     Active Substance: SEMAGLUTIDE
     Indication: Diabetes mellitus
     Route: 058

REACTIONS (10)
  - Impaired gastric emptying [None]
  - Vomiting [None]
  - Asthenia [None]
  - Nausea [None]
  - Hypophagia [None]
  - Abdominal distension [None]
  - Chest pain [None]
  - Pain [None]
  - Gastric dilatation [None]
  - Abdominal infection [None]

NARRATIVE: CASE EVENT DATE: 20241029
